FAERS Safety Report 4830634-1 (Version None)
Quarter: 2005Q4

REPORT INFORMATION
  Report Type: 
  Country: None (occurrence: None)
  Receive Date: 20051114
  Receipt Date: 20051104
  Transmission Date: 20060501
  Serious: Yes (Other)
  Sender: FDA-Public Use
  Company Number: BR-2005-023566

PATIENT
  Sex: Female

DRUGS (2)
  1. YASMIN [Suspect]
     Dosage: SEE IMAGE
     Route: 048
     Dates: start: 20030601, end: 20050301
  2. YASMIN [Suspect]
     Dosage: SEE IMAGE
     Route: 048
     Dates: start: 20050701

REACTIONS (4)
  - APPENDICECTOMY [None]
  - HYPOMENORRHOEA [None]
  - METRORRHAGIA [None]
  - TREATMENT NONCOMPLIANCE [None]
